FAERS Safety Report 13798017 (Version 3)
Quarter: 2017Q3

REPORT INFORMATION
  Report Type: Spontaneous
  Country: US (occurrence: US)
  Receive Date: 20170727
  Receipt Date: 20170824
  Transmission Date: 20171127
  Serious: No
  Sender: FDA-Public Use
  Company Number: US-PFIZER INC-2017323983

PATIENT
  Age: 64 Year
  Sex: Female

DRUGS (2)
  1. ADVIL [Suspect]
     Active Substance: IBUPROFEN
     Dosage: 200 MG, UNK
  2. PANTOPRAZOLE [Suspect]
     Active Substance: PANTOPRAZOLE
     Dosage: 40 MG, UNK

REACTIONS (11)
  - Arthritis [Unknown]
  - Discomfort [Unknown]
  - Mobility decreased [Unknown]
  - Pain [Unknown]
  - Musculoskeletal stiffness [Unknown]
  - Joint crepitation [Unknown]
  - Tendonitis [Unknown]
  - Tenderness [Unknown]
  - Joint effusion [Unknown]
  - Joint swelling [Unknown]
  - Synovitis [Unknown]
